FAERS Safety Report 8397756-2 (Version None)
Quarter: 2012Q2

REPORT INFORMATION
  Report Type: 
  Country: None (occurrence: None)
  Receive Date: 20120524
  Receipt Date: 20120514
  Transmission Date: 20120825
  Serious: Yes (Other)
  Sender: FDA-Public Use
  Company Number: AUR-APL-2012-00790

PATIENT
  Age: 67 Year
  Sex: Male

DRUGS (5)
  1. METFFORMIN HYDROCHLORIDE [Suspect]
     Indication: PRODUCT USED FOR UNKNOWN INDICATION
     Dosage: 2000 MG (1000 MG, 2 IN 1 D)
  2. LANTUS [Suspect]
     Indication: DIABETES MELLITUS
     Dosage: (15 IU, 1 D), SUBCUTANEOUS; (10 IU), SUBCUTANEOUS; (5 IU, 1 D), SUBCUTANEOUS
     Route: 058
     Dates: start: 20111101
  3. LANTUS [Suspect]
     Indication: DIABETES MELLITUS
     Dosage: (15 IU, 1 D), SUBCUTANEOUS; (10 IU), SUBCUTANEOUS; (5 IU, 1 D), SUBCUTANEOUS
     Route: 058
     Dates: start: 20111101, end: 20111101
  4. LANTUS [Suspect]
     Indication: DIABETES MELLITUS
     Dosage: (15 IU, 1 D), SUBCUTANEOUS; (10 IU), SUBCUTANEOUS; (5 IU, 1 D), SUBCUTANEOUS
     Route: 058
     Dates: start: 20111101, end: 20111101
  5. GLIPIZIDE [Suspect]
     Indication: DIABETES MELLITUS
     Dosage: 20 MG (10 MG, 2 IN 1 D)
     Route: 058

REACTIONS (4)
  - INJECTION SITE HAEMATOMA [None]
  - BLOOD GLUCOSE FLUCTUATION [None]
  - WRONG TECHNIQUE IN DRUG USAGE PROCESS [None]
  - DIABETES MELLITUS INADEQUATE CONTROL [None]
